FAERS Safety Report 12458374 (Version 1)
Quarter: 2016Q2

REPORT INFORMATION
  Report Type: Spontaneous
  Country: FR (occurrence: FR)
  Receive Date: 20160613
  Receipt Date: 20160613
  Transmission Date: 20160815
  Serious: Yes (Life-Threatening)
  Sender: FDA-Public Use
  Company Number: FR-ROCHE-1772186

PATIENT
  Age: 75 Year
  Sex: Female

DRUGS (9)
  1. XELODA [Suspect]
     Active Substance: CAPECITABINE
     Indication: RECTAL CANCER
     Route: 042
     Dates: start: 2015, end: 20151113
  2. KEPPRA [Concomitant]
     Active Substance: LEVETIRACETAM
  3. FLUDEX (FRANCE) [Concomitant]
     Active Substance: INDAPAMIDE
  4. TENORDATE [Concomitant]
     Active Substance: ATENOLOL\NIFEDIPINE
  5. LOVENOX [Concomitant]
     Active Substance: ENOXAPARIN SODIUM
  6. LEVOTHYROX [Concomitant]
     Active Substance: LEVOTHYROXINE
  7. STILNOX [Concomitant]
     Active Substance: ZOLPIDEM TARTRATE
  8. TARDYFERON (FRANCE) [Concomitant]
  9. DOLIPRANE [Concomitant]
     Active Substance: ACETAMINOPHEN

REACTIONS (3)
  - Aphasia [Recovering/Resolving]
  - Epilepsy [Recovering/Resolving]
  - Vasculitis cerebral [Recovering/Resolving]

NARRATIVE: CASE EVENT DATE: 201602
